FAERS Safety Report 10276810 (Version 2)
Quarter: 2014Q3

REPORT INFORMATION
  Report Type: Report from Study
  Country: IE (occurrence: IE)
  Receive Date: 20140703
  Receipt Date: 20140731
  Transmission Date: 20150326
  Serious: Yes (Other)
  Sender: FDA-Public Use
  Company Number: IE-BIOMARINAP-IE-2014-103604

PATIENT
  Age: 7 Year
  Sex: Male
  Weight: 16 kg

DRUGS (1)
  1. NAGLAZYME [Suspect]
     Active Substance: GALSULFASE
     Indication: MUCOPOLYSACCHARIDOSIS VI
     Dosage: 1 MG/KG, QW
     Route: 042
     Dates: start: 20070111

REACTIONS (1)
  - Cervical spinal stenosis [Not Recovered/Not Resolved]

NARRATIVE: CASE EVENT DATE: 20090327
